FAERS Safety Report 6794085-5 (Version None)
Quarter: 2010Q2

REPORT INFORMATION
  Report Type: 
  Country: None (occurrence: None)
  Receive Date: 20100624
  Receipt Date: 20091203
  Transmission Date: 20101027
  Serious: Yes (Other)
  Sender: FDA-Public Use
  Company Number: FR-PFIZER INC-2009306428

PATIENT
  Sex: Female

DRUGS (4)
  1. RELPAX [Suspect]
     Indication: MIGRAINE
     Dosage: 40 MG, UNK
  2. RELPAX [Suspect]
     Dosage: 20 MG, UNK
  3. AERIUS [Concomitant]
     Dosage: UNK
  4. NASONEX [Concomitant]
     Dosage: UNK

REACTIONS (2)
  - ANGIOPATHY [None]
  - CHILLBLAINS [None]
